FAERS Safety Report 15239115 (Version 1)
Quarter: 2018Q3

REPORT INFORMATION
  Report Type: Spontaneous
  Country: US (occurrence: US)
  Receive Date: 20180803
  Receipt Date: 20180803
  Transmission Date: 20181010
  Serious: No
  Sender: FDA-Public Use
  Company Number: US-ENDO PHARMACEUTICALS INC-2018-016407

PATIENT
  Sex: Male

DRUGS (3)
  1. PREDNISONE TABLETS [Suspect]
     Active Substance: PREDNISONE
     Indication: RASH
     Dosage: 60 MG, DAILY
     Route: 065
  2. VFEND [Suspect]
     Active Substance: VORICONAZOLE
     Indication: PRODUCT USED FOR UNKNOWN INDICATION
     Dosage: 300 MG, BID, 200MG TABLET 1 AND 1/2 TABLETS TWICE A DAY BY MOUTH
     Route: 048
  3. PREDNISONE TABLETS [Suspect]
     Active Substance: PREDNISONE
     Dosage: UNK, UNKNOWN, LOW DOSE
     Route: 065

REACTIONS (1)
  - Diarrhoea [Unknown]
